FAERS Safety Report 8261264-X (Version None)
Quarter: 2012Q2

REPORT INFORMATION
  Report Type: 
  Country: None (occurrence: None)
  Receive Date: 20120405
  Receipt Date: 20120330
  Transmission Date: 20120825
  Serious: Yes (Other)
  Sender: FDA-Public Use
  Company Number: AU-JNJFOC-20120306634

PATIENT
  Sex: Male

DRUGS (6)
  1. STELARA [Suspect]
     Route: 058
     Dates: start: 20110629, end: 20110629
  2. STELARA [Suspect]
     Route: 058
     Dates: start: 20101212, end: 20101212
  3. STELARA [Suspect]
     Route: 058
     Dates: start: 20110923, end: 20110923
  4. STELARA [Suspect]
     Route: 058
     Dates: start: 20120210, end: 20120210
  5. STELARA [Suspect]
     Route: 058
     Dates: start: 20110121, end: 20110121
  6. STELARA [Suspect]
     Indication: PSORIASIS
     Route: 058
     Dates: start: 20110408, end: 20110408

REACTIONS (3)
  - RENAL IMPAIRMENT [None]
  - DYSPNOEA [None]
  - SLEEP APNOEA SYNDROME [None]
